FAERS Safety Report 4360250-X (Version None)
Quarter: 2004Q2

REPORT INFORMATION
  Report Type: 
  Country: None (occurrence: None)
  Receive Date: 20040513
  Receipt Date: 20040428
  Transmission Date: 20050107
  Serious: Yes (Hospitalization)
  Sender: FDA-Public Use
  Company Number: A20040256

PATIENT
  Age: 77 Year
  Sex: Female

DRUGS (4)
  1. CRAVIT OPHTHALMIC SOLUTION (0.5% LEVOFLOXACIN OPHTHALMIC SOLUTION) [Suspect]
     Route: 031
  2. TENORMIN [Suspect]
     Indication: VENTRICULAR EXTRASYSTOLES
     Dosage: 12.5 MG INTERNAL USE
     Dates: start: 20040331, end: 20040331
  3. MEXITIL [Suspect]
     Indication: VENTRICULAR EXTRASYSTOLES
     Dosage: 250 MG INTERNAL USE
     Dates: start: 20040331, end: 20040331
  4. MEXILETINE HYDROCHLORIDE [Concomitant]

REACTIONS (2)
  - LYMPHOCYTE STIMULATION TEST POSITIVE [None]
  - RASH [None]
